FAERS Safety Report 5769842-4 (Version None)
Quarter: 2008Q2

REPORT INFORMATION
  Report Type: 
  Country: None (occurrence: None)
  Receive Date: 20080613
  Receipt Date: 20080505
  Transmission Date: 20081010
  Serious: No
  Sender: FDA-Public Use
  Company Number: US-ABBOTT-08P-163-0446729-00

PATIENT
  Sex: Female
  Weight: 65.83 kg

DRUGS (6)
  1. HUMIRA [Suspect]
     Indication: CROHN'S DISEASE
     Route: 058
  2. HUMIRA [Suspect]
     Route: 058
     Dates: start: 20071101, end: 20071101
  3. BUDESONIDE [Concomitant]
     Indication: CROHN'S DISEASE
     Route: 048
     Dates: start: 20060101
  4. BUDESONIDE [Concomitant]
     Route: 048
  5. BUDESONIDE [Concomitant]
     Route: 048
     Dates: end: 20071201
  6. BUDESONIDE [Concomitant]
     Route: 048
     Dates: start: 20080401

REACTIONS (5)
  - ARTHRALGIA [None]
  - DIARRHOEA [None]
  - JOINT SWELLING [None]
  - OEDEMA PERIPHERAL [None]
  - RASH [None]
